FAERS Safety Report 13735326 (Version 3)
Quarter: 2017Q3

REPORT INFORMATION
  Report Type: Report from Study
  Country: None (occurrence: DE)
  Receive Date: 20170710
  Receipt Date: 20170830
  Transmission Date: 20171127
  Serious: Yes (Hospitalization)
  Sender: FDA-Public Use
  Company Number: DE-ABBVIE-17K-062-2032496-00

PATIENT
  Sex: Male

DRUGS (5)
  1. DUODOPA [Suspect]
     Active Substance: CARBIDOPA\LEVODOPA
     Dosage: MD: 6.0ML; CRD: 1.3ML/H; ED: 1.0ML
     Route: 050
     Dates: start: 2017, end: 2017
  2. DUODOPA [Suspect]
     Active Substance: CARBIDOPA\LEVODOPA
     Dosage: MD: 6.0ML;?CRD: 2ML/H;?ED: 1.0ML
     Route: 050
     Dates: start: 2017
  3. MACROGOL [Concomitant]
     Active Substance: POLYETHYLENE GLYCOLS
     Indication: PRODUCT USED FOR UNKNOWN INDICATION
  4. OMEPRAZOL [Concomitant]
     Active Substance: OMEPRAZOLE
     Indication: PRODUCT USED FOR UNKNOWN INDICATION
  5. DUODOPA [Suspect]
     Active Substance: CARBIDOPA\LEVODOPA
     Indication: PARKINSON^S DISEASE
     Dosage: MD: 6.0ML; CRD: 1.3ML/H; ED: 1.0ML
     Route: 050
     Dates: start: 20150129, end: 2017

REACTIONS (5)
  - Dehydration [Recovering/Resolving]
  - Device leakage [Unknown]
  - General physical health deterioration [Recovering/Resolving]
  - Dysphagia [Recovering/Resolving]
  - Hypokinesia [Recovering/Resolving]
